FAERS Safety Report 11534732 (Version 2)
Quarter: 2015Q3

REPORT INFORMATION
  Report Type: Spontaneous
  Country: US (occurrence: US)
  Receive Date: 20150922
  Receipt Date: 20150923
  Transmission Date: 20151125
  Serious: Yes (Hospitalization, Other)
  Sender: FDA-Public Use
  Company Number: US-RECKITT BENCKISER HEALTHCARE INT LIMITED-RB-07549-2015

PATIENT

DRUGS (1)
  1. DELSYM [Suspect]
     Active Substance: DEXTROMETHORPHAN
     Indication: DRUG ABUSE
     Dosage: UNK
     Route: 065
     Dates: start: 2014, end: 20150904

REACTIONS (6)
  - Dysarthria [Unknown]
  - Mydriasis [Unknown]
  - Disorientation [Unknown]
  - Drug abuse [Unknown]
  - Balance disorder [Unknown]
  - Vomiting [Unknown]
